FAERS Safety Report 8984629 (Version 1)
Quarter: 2012Q4

REPORT INFORMATION
  Report Type: Report from Study
  Country: US (occurrence: US)
  Receive Date: 20121225
  Receipt Date: 20121225
  Transmission Date: 20130627
  Serious: No
  Sender: FDA-Public Use
  Company Number: US-JNJFOC-20121008076

PATIENT
  Age: 67 Year
  Sex: Female
  Weight: 61.24 kg

DRUGS (5)
  1. REMICADE [Suspect]
     Indication: RHEUMATOID ARTHRITIS
     Route: 042
     Dates: start: 201112
  2. METHOTREXATE [Concomitant]
     Indication: ARTHRITIS
     Route: 065
  3. B 12 [Concomitant]
     Route: 065
  4. MULTIVITAMINS [Concomitant]
     Indication: MEDICAL DIET
     Route: 048
  5. PROBIOTIC [Concomitant]
     Indication: MEDICAL DIET
     Route: 048

REACTIONS (1)
  - Herpes zoster [Not Recovered/Not Resolved]
